FAERS Safety Report 9769444 (Version 3)
Quarter: 2014Q1

REPORT INFORMATION
  Report Type: Report from Study
  Country: BR (occurrence: BR)
  Receive Date: 20131218
  Receipt Date: 20140114
  Transmission Date: 20141002
  Serious: Yes (Death, Other)
  Sender: FDA-Public Use
  Company Number: PHHY2013BR147381

PATIENT
  Age: 70 Year
  Sex: Female

DRUGS (2)
  1. DIOVAN [Suspect]
     Indication: HYPERTENSION
     Dosage: DAILY UNSPECIFIED DOSE
     Route: 048
     Dates: end: 201303
  2. RIVOTRIL [Concomitant]
     Indication: SLEEP DISORDER
     Dosage: 2 MG, UNK
     Dates: end: 201303

REACTIONS (10)
  - Multi-organ failure [Fatal]
  - Diabetes mellitus [Fatal]
  - Hypertension [Fatal]
  - Haematemesis [Unknown]
  - Epistaxis [Unknown]
  - Dizziness [Unknown]
  - Malaise [Unknown]
  - Fall [Unknown]
  - Abasia [Unknown]
  - Obesity [Unknown]
